FAERS Safety Report 10426396 (Version 1)
Quarter: 2014Q3

REPORT INFORMATION
  Report Type: Spontaneous
  Country: JP (occurrence: JP)
  Receive Date: 20140903
  Receipt Date: 20140903
  Transmission Date: 20150326
  Serious: Yes (Hospitalization)
  Sender: FDA-Public Use
  Company Number: JP-JNJFOC-20140901698

PATIENT
  Age: 65 Year
  Sex: Female

DRUGS (5)
  1. CLINORIL [Concomitant]
     Active Substance: SULINDAC
     Route: 048
  2. SIMPONI [Suspect]
     Active Substance: GOLIMUMAB
     Indication: RHEUMATOID ARTHRITIS
     Route: 058
     Dates: start: 20140524, end: 201408
  3. GASTER [Concomitant]
     Active Substance: FAMOTIDINE
     Route: 048
  4. RIMATIL [Concomitant]
     Active Substance: BUCILLAMINE
     Route: 048
  5. NORVASC [Concomitant]
     Active Substance: AMLODIPINE BESYLATE
     Route: 048

REACTIONS (1)
  - Herpes zoster [Recovering/Resolving]

NARRATIVE: CASE EVENT DATE: 20140725
